FAERS Safety Report 9305721 (Version 2)
Quarter: 2013Q2

REPORT INFORMATION
  Report Type: Spontaneous
  Country: US (occurrence: US)
  Receive Date: 20130523
  Receipt Date: 20130625
  Transmission Date: 20140414
  Serious: Yes (Hospitalization)
  Sender: FDA-Public Use
  Company Number: US-ELI_LILLY_AND_COMPANY-US201305004207

PATIENT
  Age: 81 Year
  Sex: Female

DRUGS (22)
  1. FORTEO [Suspect]
     Indication: OSTEOGENESIS IMPERFECTA
     Dosage: 20 UG, QD
     Route: 058
     Dates: start: 201205
  2. FORTEO [Suspect]
     Indication: OSTEOPOROSIS
  3. DIGOXIN [Concomitant]
     Indication: ATRIAL FIBRILLATION
     Dosage: 125 UG, UNK
  4. COUMADIN [Concomitant]
     Indication: DEEP VEIN THROMBOSIS
     Dosage: UNK
  5. METOPROLOL [Concomitant]
     Dosage: UNK
  6. RESTASIS [Concomitant]
     Indication: EYE DISORDER
     Dosage: UNK
  7. PLAQUENIL [Concomitant]
     Indication: ARTHRITIS
     Dosage: 200 MG, UNK
  8. SYNTHROID [Concomitant]
     Dosage: 137 UG, UNK
  9. PAROXETINE [Concomitant]
     Dosage: 10 MG, UNK
  10. VITAMIN K [Concomitant]
     Dosage: 50000 U, EVERY 2 WEEKS
  11. IRON [Concomitant]
     Dosage: 325 MG, BID
  12. MULTIVITAMIN [Concomitant]
     Dosage: UNK
  13. STOOL SOFTENER [Concomitant]
     Indication: FAECES HARD
     Dosage: UNK
  14. NITROGLYCERINE [Concomitant]
     Dosage: UNK UNK, PRN
  15. LASIX [Concomitant]
     Dosage: 20-40 MG, QD
  16. POTASSIUM CHLORIDE [Concomitant]
     Dosage: 10 MEQ, QD
  17. PEPCID [Concomitant]
     Indication: DYSPEPSIA
     Dosage: 20 MG, UNK
  18. VITAMIN C [Concomitant]
     Dosage: 500 MG, UNK
  19. PROVIGIL [Concomitant]
     Dosage: 50 MG, UNK
  20. BIOTIN [Concomitant]
     Dosage: UNK
  21. CALCIUM [Concomitant]
  22. VITAMIN D                          /00107901/ [Concomitant]

REACTIONS (2)
  - Cerebrovascular accident [Recovered/Resolved]
  - Off label use [Unknown]
